FAERS Safety Report 12154624 (Version 3)
Quarter: 2019Q1

REPORT INFORMATION
  Report Type: Report from Study
  Country: US (occurrence: US)
  Receive Date: 20160307
  Receipt Date: 20190130
  Transmission Date: 20190417
  Serious: Yes (Hospitalization, Other)
  Sender: FDA-Public Use
  Company Number: PHEH2016US005127

PATIENT
  Sex: Female

DRUGS (1)
  1. GLEEVEC [Suspect]
     Active Substance: IMATINIB MESYLATE
     Indication: PRODUCT USED FOR UNKNOWN INDICATION
     Route: 048

REACTIONS (7)
  - Hip fracture [Unknown]
  - Wrist fracture [Unknown]
  - Glaucoma [Unknown]
  - Pain [Unknown]
  - Arthritis [Unknown]
  - Leukaemia [Unknown]
  - Fall [Unknown]
